FAERS Safety Report 9890699 (Version 1)
Quarter: 2014Q1

REPORT INFORMATION
  Report Type: Spontaneous
  Country: GB (occurrence: None)
  Receive Date: 20140210
  Receipt Date: 20140210
  Transmission Date: 20141002
  Serious: Yes (Other)
  Sender: FDA-Public Use
  Company Number: AUR-APL-2014-01359

PATIENT
  Age: 61 Year
  Sex: Female

DRUGS (2)
  1. CITALOPRAM [Suspect]
     Indication: PRODUCT USED FOR UNKNOWN INDICATION
  2. IMOVANE (ZOPICLONE) [Suspect]
     Indication: INSOMNIA
     Dosage: (3.75 MG, 1 D)
     Dates: start: 201303

REACTIONS (20)
  - Night sweats [None]
  - Oropharyngeal pain [None]
  - Pruritus [None]
  - Burning sensation [None]
  - Feeling hot [None]
  - Paraesthesia [None]
  - Pharyngeal oedema [None]
  - Dysphagia [None]
  - Dry throat [None]
  - Dizziness [None]
  - Anxiety [None]
  - Glossodynia [None]
  - Tongue pruritus [None]
  - Rash [None]
  - Muscle twitching [None]
  - Dyskinesia [None]
  - Cyst [None]
  - Decreased appetite [None]
  - Weight decreased [None]
  - Drug dependence [None]
